FAERS Safety Report 9496582 (Version 1)
Quarter: 2013Q3

REPORT INFORMATION
  Report Type: Report from Study
  Country: US (occurrence: US)
  Receive Date: 20130904
  Receipt Date: 20130904
  Transmission Date: 20140515
  Serious: Yes (Hospitalization)
  Sender: FDA-Public Use
  Company Number: US-TEVA-429215USA

PATIENT
  Age: 32 Year
  Sex: Male
  Weight: 75.4 kg

DRUGS (2)
  1. FIDAXOMICIN [Suspect]
     Indication: CLOSTRIDIUM DIFFICILE INFECTION
  2. DIFICID (FIDAXOMICIN) [Suspect]
     Indication: CLOSTRIDIUM DIFFICILE INFECTION
     Route: 048
     Dates: start: 20130815, end: 20130815

REACTIONS (1)
  - Joint injury [Unknown]
